FAERS Safety Report 8335654-0 (Version None)
Quarter: 2012Q2

REPORT INFORMATION
  Report Type: 
  Country: None (occurrence: None)
  Receive Date: 20120504
  Receipt Date: 20120426
  Transmission Date: 20120825
  Serious: No
  Sender: FDA-Public Use
  Company Number: US-BIOGENIDEC-2009BI012034

PATIENT
  Sex: Female

DRUGS (2)
  1. BOTOX [Concomitant]
     Indication: PROPHYLAXIS
  2. TYSABRI [Suspect]
     Indication: MULTIPLE SCLEROSIS
     Route: 042
     Dates: start: 20081217

REACTIONS (6)
  - PAIN IN JAW [None]
  - MEMORY IMPAIRMENT [None]
  - LIP PAIN [None]
  - HEADACHE [None]
  - CYSTITIS [None]
  - FALL [None]
